FAERS Safety Report 7558146-5 (Version None)
Quarter: 2011Q2

REPORT INFORMATION
  Report Type: 
  Country: None (occurrence: None)
  Receive Date: 20110620
  Receipt Date: 20110613
  Transmission Date: 20111010
  Serious: Yes (Hospitalization)
  Sender: FDA-Public Use
  Company Number: US-US-EMD SERONO, INC.-7021913

PATIENT
  Sex: Female

DRUGS (2)
  1. REBIF [Suspect]
     Indication: MULTIPLE SCLEROSIS
     Route: 058
     Dates: start: 20100926
  2. REBIF [Suspect]
     Route: 058
     Dates: end: 20110501

REACTIONS (7)
  - OPTIC NEURITIS [None]
  - PSYCHOMOTOR HYPERACTIVITY [None]
  - INFLUENZA LIKE ILLNESS [None]
  - INJECTION SITE ERYTHEMA [None]
  - DEPRESSION [None]
  - HUNGER [None]
  - INJECTION SITE PAIN [None]
